FAERS Safety Report 6826815-8 (Version None)
Quarter: 2010Q3

REPORT INFORMATION
  Report Type: 
  Country: None (occurrence: None)
  Receive Date: 20100709
  Receipt Date: 20100628
  Transmission Date: 20110219
  Serious: Yes (Other)
  Sender: FDA-Public Use
  Company Number: BE-ROCHE-707924

PATIENT
  Sex: Female
  Weight: 60 kg

DRUGS (4)
  1. ROACTEMRA [Suspect]
     Indication: RHEUMATOID ARTHRITIS
     Route: 042
     Dates: end: 20100101
  2. ROACTEMRA [Suspect]
     Route: 042
     Dates: end: 20100531
  3. METHOTREXATE [Concomitant]
     Route: 048
  4. MEDROL [Concomitant]
     Route: 048

REACTIONS (2)
  - EPISTAXIS [None]
  - SUBCUTANEOUS HAEMATOMA [None]
